FAERS Safety Report 17837344 (Version 1)
Quarter: 2020Q2

REPORT INFORMATION
  Report Type: Spontaneous
  Country: CN (occurrence: CN)
  Receive Date: 20200528
  Receipt Date: 20200528
  Transmission Date: 20200714
  Serious: Yes (Disabling)
  Sender: FDA-Public Use
  Company Number: CN-FRESENIUS KABI-FK202005184

PATIENT
  Age: 86 Year
  Sex: Female
  Weight: 50 kg

DRUGS (5)
  1. GINKGO BILOBA LEAF [Suspect]
     Active Substance: GINKGO
     Indication: CEREBRAL INFARCTION
     Dosage: 10ML QD
     Route: 041
     Dates: start: 20200412, end: 20200415
  2. SODIUM CHLORIDE. [Concomitant]
     Active Substance: SODIUM CHLORIDE
     Indication: VEHICLE SOLUTION USE
     Dosage: 250ML QD
     Route: 041
     Dates: start: 20200412, end: 20200415
  3. LIPOVENOES MCT 20% [Suspect]
     Active Substance: EGG PHOSPHOLIPIDS\GLYCERIN\MEDIUM-CHAIN TRIGLYCERIDES\SOYBEAN OIL
     Indication: CEREBRAL INFARCTION
     Dosage: 250 ML QD
     Route: 041
     Dates: start: 20200414, end: 20200415
  4. ALPROSTADIL. [Suspect]
     Active Substance: ALPROSTADIL
     Indication: CEREBRAL INFARCTION
     Dosage: 10 UG, QD
     Route: 042
     Dates: start: 20200412, end: 20200415
  5. SODIUM CHLORIDE. [Concomitant]
     Active Substance: SODIUM CHLORIDE
     Indication: VEHICLE SOLUTION USE
     Dosage: 10ML QD
     Route: 041
     Dates: start: 20200412, end: 20200415

REACTIONS (1)
  - Erythema [Recovering/Resolving]

NARRATIVE: CASE EVENT DATE: 20200414
